FAERS Safety Report 8029512-9 (Version None)
Quarter: 2012Q1

REPORT INFORMATION
  Report Type: 
  Country: None (occurrence: None)
  Receive Date: 20120109
  Receipt Date: 20111229
  Transmission Date: 20120608
  Serious: Yes (Other)
  Sender: FDA-Public Use
  Company Number: US-BIOGENIDEC-2011BI048987

PATIENT
  Sex: Male

DRUGS (1)
  1. AVONEX [Suspect]
     Indication: MULTIPLE SCLEROSIS
     Route: 030
     Dates: start: 20080626

REACTIONS (4)
  - CROHN'S DISEASE [None]
  - DRY SKIN [None]
  - INFLUENZA LIKE ILLNESS [None]
  - MUSCLE DISORDER [None]
